FAERS Safety Report 23987181 (Version 1)
Quarter: 2024Q2

REPORT INFORMATION
  Report Type: Spontaneous
  Country: US (occurrence: US)
  Receive Date: 20240618
  Receipt Date: 20240618
  Transmission Date: 20240717
  Serious: No
  Sender: FDA-Public Use
  Company Number: US-LNK INTERNATIONAL, INC.-2158279

PATIENT
  Sex: Female

DRUGS (1)
  1. ANTI-DIARRHEAL (LOPERAMIDE HYDROCHLORIDE) [Suspect]
     Active Substance: LOPERAMIDE HYDROCHLORIDE
     Indication: Diarrhoea

REACTIONS (1)
  - Abdominal distension [Unknown]
